FAERS Safety Report 13194905 (Version 2)
Quarter: 2017Q1

REPORT INFORMATION
  Report Type: Report from Study
  Country: None (occurrence: CA)
  Receive Date: 20170207
  Receipt Date: 20170302
  Transmission Date: 20170428
  Serious: Yes (Hospitalization)
  Sender: FDA-Public Use
  Company Number: CA-ABBVIE-17K-028-1862286-00

PATIENT
  Age: 73 Year
  Sex: Male

DRUGS (2)
  1. HUMIRA [Suspect]
     Active Substance: ADALIMUMAB
     Indication: PSORIASIS
     Route: 058
     Dates: start: 20100923, end: 20170116
  2. HUMIRA [Suspect]
     Active Substance: ADALIMUMAB
     Route: 058
     Dates: start: 20170216

REACTIONS (3)
  - Fall [Recovered/Resolved]
  - Abasia [Recovering/Resolving]
  - Head injury [Not Recovered/Not Resolved]

NARRATIVE: CASE EVENT DATE: 201701
